FAERS Safety Report 13047955 (Version 1)
Quarter: 2016Q4

REPORT INFORMATION
  Report Type: Spontaneous
  Country: FR (occurrence: FR)
  Receive Date: 20161220
  Receipt Date: 20161220
  Transmission Date: 20170207
  Serious: Yes (Death)
  Sender: FDA-Public Use
  Company Number: FR-PFIZER INC-2016584047

PATIENT
  Sex: Female

DRUGS (2)
  1. METHOTREXATE SODIUM. [Suspect]
     Active Substance: METHOTREXATE SODIUM
     Indication: PLACENTA ACCRETA
     Dosage: 50 MG/M2, UNK
  2. FOLINIC ACID [Suspect]
     Active Substance: LEUCOVORIN
     Indication: PLACENTA ACCRETA
     Dosage: UNK

REACTIONS (5)
  - Peritonitis [Fatal]
  - Acute kidney injury [Fatal]
  - Aplasia [Fatal]
  - Septic shock [Fatal]
  - Nephropathy toxic [Fatal]
